FAERS Safety Report 14172459 (Version 1)
Quarter: 2017Q4

REPORT INFORMATION
  Report Type: Spontaneous
  Country: US (occurrence: US)
  Receive Date: 20171108
  Receipt Date: 20171108
  Transmission Date: 20180321
  Serious: No
  Sender: FDA-Public Use
  Company Number: None

PATIENT
  Age: 43 Year
  Sex: Female

DRUGS (1)
  1. GADAVIST [Suspect]
     Active Substance: GADOBUTROL
     Indication: HEADACHE
     Route: 042
     Dates: start: 20171103, end: 20171103

REACTIONS (4)
  - Flushing [None]
  - Dyspnoea [None]
  - Throat tightness [None]
  - Erythema [None]

NARRATIVE: CASE EVENT DATE: 20171103
